FAERS Safety Report 6159650-7 (Version None)
Quarter: 2009Q2

REPORT INFORMATION
  Report Type: 
  Country: None (occurrence: None)
  Receive Date: 20090420
  Receipt Date: 20090409
  Transmission Date: 20091009
  Serious: Yes (Other)
  Sender: FDA-Public Use
  Company Number: IT-JNJFOC-20090307247

PATIENT
  Age: 29 Year
  Sex: Male

DRUGS (2)
  1. INFLIXIMAB [Suspect]
     Indication: SPONDYLITIS
     Route: 042
  2. INFLIXIMAB [Suspect]
     Indication: CROHN'S DISEASE
     Dosage: RECEIVED 3 INFUSIONS
     Route: 042

REACTIONS (1)
  - ERYTHRODERMIC PSORIASIS [None]
